FAERS Safety Report 4363487-9 (Version None)
Quarter: 2004Q2

REPORT INFORMATION
  Report Type: 
  Country: None (occurrence: None)
  Receive Date: 20040517
  Receipt Date: 20040323
  Transmission Date: 20050107
  Serious: No
  Sender: FDA-Public Use
  Company Number: S04-USA-01616-01

PATIENT
  Age: 65 Year
  Sex: Female

DRUGS (12)
  1. NAMENDA [Suspect]
     Indication: DEMENTIA
     Dosage: 5 MG QD PO
     Route: 048
     Dates: start: 20040303, end: 20040309
  2. NAMENDA [Suspect]
     Indication: DEMENTIA
     Dosage: 10 MG QD PO
     Route: 048
     Dates: start: 20040310, end: 20040316
  3. NAMENDA [Suspect]
     Indication: DEMENTIA
     Dosage: 15 MG QD PO
     Route: 048
     Dates: start: 20040317, end: 20040317
  4. ZYPREXA [Concomitant]
  5. REMINYL [Concomitant]
  6. LEXAPRO [Concomitant]
  7. TRILEPTAL [Concomitant]
  8. BENZTROPINE MESYLATE [Concomitant]
  9. VITAMIN E [Concomitant]
  10. VITAMIN C [Concomitant]
  11. TRAZODONE HCL [Concomitant]
  12. SYNTHROID [Concomitant]

REACTIONS (1)
  - EXTRAPYRAMIDAL DISORDER [None]
